FAERS Safety Report 9069203 (Version 2)
Quarter: 2013Q1

REPORT INFORMATION
  Report Type: Spontaneous
  Country: JP (occurrence: JP)
  Receive Date: 20130215
  Receipt Date: 20130225
  Transmission Date: 20140127
  Serious: Yes (Hospitalization)
  Sender: FDA-Public Use
  Company Number: JP-BAXTER-2013BAX005672

PATIENT
  Sex: Male

DRUGS (6)
  1. DIANEAL-N PD-4 1.5 PD SOLUTION [Suspect]
     Indication: RENAL FAILURE CHRONIC
     Route: 033
     Dates: start: 20120606
  2. DIANEAL-N PD-4 1.5 PD SOLUTION [Suspect]
     Route: 033
  3. DIANEAL-N PD-4 2.5 PD SOLUTION [Suspect]
     Indication: RENAL FAILURE CHRONIC
     Route: 033
     Dates: start: 20120628
  4. DIANEAL-N PD-4 2.5 PD SOLUTION [Suspect]
     Route: 033
  5. EXTRANEAL PD SOLUTION [Suspect]
     Indication: RENAL FAILURE CHRONIC
     Route: 033
     Dates: start: 20090805
  6. EXTRANEAL PD SOLUTION [Suspect]
     Route: 033
     Dates: start: 20130218

REACTIONS (1)
  - Guillain-Barre syndrome [Recovering/Resolving]
